FAERS Safety Report 5571415-3 (Version None)
Quarter: 2007Q4

REPORT INFORMATION
  Report Type: 
  Country: None (occurrence: None)
  Receive Date: 20071221
  Receipt Date: 20071026
  Transmission Date: 20080405
  Serious: No
  Sender: FDA-Public Use
  Company Number: A0690068A

PATIENT
  Age: 45 Year
  Sex: Male

DRUGS (4)
  1. FLONASE [Suspect]
     Indication: MULTIPLE ALLERGIES
     Dosage: 2SPR PER DAY
     Route: 045
     Dates: start: 20070901
  2. LODINE [Concomitant]
  3. REMERON [Concomitant]
  4. CLONAZEPAM [Concomitant]

REACTIONS (2)
  - BILIRUBIN URINE [None]
  - URINARY TRACT INFECTION [None]
